FAERS Safety Report 7827595-X (Version None)
Quarter: 2011Q4

REPORT INFORMATION
  Report Type: 
  Country: None (occurrence: None)
  Receive Date: 20111019
  Receipt Date: 20111019
  Transmission Date: 20120403
  Serious: Yes (Hospitalization)
  Sender: FDA-Public Use
  Company Number: None

PATIENT
  Sex: Male
  Weight: 89.7 kg

DRUGS (3)
  1. RITUXIMAB (MOAB C2B8 ANTI CD20, CHIMERIC) [Suspect]
     Dosage: 1000 MG
     Dates: end: 20110906
  2. CYCLOPHOSPHAMIDE [Suspect]
     Dosage: 1500 MG
     Dates: end: 20110908
  3. FLUDARABINE PHOSPHATE [Suspect]
     Dosage: 150 MG
     Dates: end: 20110908

REACTIONS (2)
  - PANCYTOPENIA [None]
  - FEBRILE NEUTROPENIA [None]
